FAERS Safety Report 9730947 (Version 3)
Quarter: 2014Q1

REPORT INFORMATION
  Report Type: Report from Study
  Country: DE (occurrence: DE)
  Receive Date: 20131203
  Receipt Date: 20140115
  Transmission Date: 20141002
  Serious: Yes (Hospitalization)
  Sender: FDA-Public Use
  Company Number: PHHY2013DE099797

PATIENT
  Sex: Female
  Weight: 65 kg

DRUGS (8)
  1. AFINITOR [Suspect]
     Indication: BREAST CANCER METASTATIC
     Dosage: 10 MG, QD
     Route: 048
     Dates: start: 20130108, end: 20130315
  2. AFINITOR [Suspect]
     Dosage: 10 MG, EVERY 2 DAYS
     Route: 048
     Dates: start: 20130411, end: 20130508
  3. AFINITOR [Suspect]
     Dosage: 5 MG, QD
     Route: 048
     Dates: start: 20130531, end: 20131105
  4. AFINITOR [Suspect]
     Dosage: 5 MG, QD
     Route: 048
     Dates: start: 20131125
  5. EXEMESTANE [Suspect]
     Dosage: 25 MG, QD
     Route: 048
     Dates: start: 20130108, end: 20130315
  6. EXEMESTANE [Suspect]
     Dosage: 25 MG, QD
     Route: 048
     Dates: start: 20130328
  7. BISPHOSPHONATES [Concomitant]
  8. DENOSUMAB [Concomitant]
     Indication: BONE DISORDER

REACTIONS (2)
  - Macular fibrosis [Recovered/Resolved]
  - Neutropenia [Recovered/Resolved]
